FAERS Safety Report 6577283-5 (Version None)
Quarter: 2010Q1

REPORT INFORMATION
  Report Type: 
  Country: None (occurrence: None)
  Receive Date: 20100210
  Receipt Date: 20100202
  Transmission Date: 20100710
  Serious: No
  Sender: FDA-Public Use
  Company Number: US-B.I. PHARMACEUTICALS,INC./RIDGEFIELD-2010-BP-01305BP

PATIENT
  Age: 51 Year
  Sex: Female

DRUGS (8)
  1. CATAPRES-TTS-1 [Suspect]
     Indication: HYPERTENSION
     Dosage: 0.2 MG
     Route: 061
     Dates: start: 20080101
  2. METFORMIN HCL [Concomitant]
     Indication: DIABETES MELLITUS
  3. GEMFIBROZIL [Concomitant]
     Indication: DIABETES MELLITUS
  4. GLIPIZIDE [Concomitant]
     Indication: DIABETES MELLITUS
  5. LEVOTHYROXINE SODIUM [Concomitant]
     Indication: HYPOTHYROIDISM
  6. LYRICA [Concomitant]
     Indication: NEUROPATHY PERIPHERAL
  7. FISH OIL [Concomitant]
     Indication: PROPHYLAXIS
  8. PROZAC [Concomitant]
     Indication: DEPRESSION

REACTIONS (1)
  - THERAPEUTIC RESPONSE DECREASED [None]
